FAERS Safety Report 4852111-4 (Version None)
Quarter: 2005Q4

REPORT INFORMATION
  Report Type: 
  Country: None (occurrence: None)
  Receive Date: 20051123
  Receipt Date: 20050901
  Transmission Date: 20060501
  Serious: No
  Sender: FDA-Public Use
  Company Number: 217447

PATIENT
  Age: 58 Year
  Sex: Female

DRUGS (1)
  1. RAPTIVA [Suspect]
     Indication: DRUG USE FOR UNKNOWN INDICATION
     Dosage: 125 MG, 1/WEEK, SUBCUTANEOUS
     Route: 058

REACTIONS (1)
  - LYMPHOCYTOSIS [None]
